FAERS Safety Report 6686455-0 (Version None)
Quarter: 2010Q2

REPORT INFORMATION
  Report Type: 
  Country: None (occurrence: None)
  Receive Date: 20100419
  Receipt Date: 20100325
  Transmission Date: 20101027
  Serious: Yes (Hospitalization)
  Sender: FDA-Public Use
  Company Number: US-ELI_LILLY_AND_COMPANY-US201003006138

PATIENT
  Sex: Female
  Weight: 93.424 kg

DRUGS (21)
  1. PRASUGREL HYDROCHLORIDE [Suspect]
     Indication: ACUTE CORONARY SYNDROME
     Route: 048
     Dates: start: 20091111
  2. ASPIRIN [Concomitant]
     Dosage: 162 MG, DAILY (1/D)
     Dates: start: 20030401, end: 20091103
  3. ASPIRIN [Concomitant]
     Dosage: 325 MG, DAILY (1/D)
     Dates: start: 20091103, end: 20091108
  4. ASPIRIN [Concomitant]
     Dosage: 162 MG, DAILY (1/D)
     Dates: start: 20091109, end: 20091111
  5. ASPIRIN [Concomitant]
     Dosage: 81 MG, DAILY (1/D)
     Dates: start: 20091111
  6. LANTUS [Concomitant]
     Indication: DIABETES MELLITUS
     Dates: start: 20030217
  7. HUMALOG [Concomitant]
     Indication: DIABETES MELLITUS
     Dates: start: 20080708
  8. OMEPRAZOLE [Concomitant]
     Indication: GASTROOESOPHAGEAL REFLUX DISEASE
     Dates: start: 20080408
  9. LEVOTHYROXINE [Concomitant]
     Indication: HYPOTHYROIDISM
     Dates: start: 20080110
  10. LOTREL [Concomitant]
     Indication: HYPERTENSION
     Dates: start: 20020914
  11. SIMVASTATIN [Concomitant]
     Indication: HYPERLIPIDAEMIA
     Dates: start: 20070605
  12. NITROGLYCERIN [Concomitant]
     Indication: PROPHYLAXIS
     Dates: start: 20071025
  13. FISH OIL [Concomitant]
     Indication: PROPHYLAXIS
     Dates: start: 20090713
  14. MULTI-VIT [Concomitant]
     Indication: PROPHYLAXIS
     Dates: start: 20090713
  15. CALCIUM [Concomitant]
     Indication: PROPHYLAXIS
     Dates: start: 20020914
  16. CINNAMON [Concomitant]
     Indication: PROPHYLAXIS
     Dates: start: 20090713
  17. VITAMINE C [Concomitant]
     Indication: PROPHYLAXIS
     Dates: start: 20020914
  18. SPIRIVA [Concomitant]
     Indication: ASTHMA
     Dates: start: 20080708
  19. EFFEXOR [Concomitant]
     Indication: HYPERTENSION
     Dates: start: 20090713
  20. HYDROCHLOROTHIAZIDE [Concomitant]
     Indication: HYPERTENSION
     Dates: start: 20090713
  21. TOPROL-XL [Concomitant]
     Indication: HYPERTENSION
     Dates: start: 20090713

REACTIONS (1)
  - DYSPNOEA [None]
